FAERS Safety Report 5830475-2 (Version None)
Quarter: 2008Q3

REPORT INFORMATION
  Report Type: 
  Country: None (occurrence: None)
  Receive Date: 20080801
  Receipt Date: 20070604
  Transmission Date: 20090109
  Serious: Yes (Other)
  Sender: FDA-Public Use
  Company Number: US-BRISTOL-MYERS SQUIBB COMPANY-13801451

PATIENT
  Age: 62 Year
  Sex: Male
  Weight: 82 kg

DRUGS (5)
  1. COUMADIN [Suspect]
     Indication: AORTIC VALVE REPLACEMENT
     Dosage: DOSAGE FOR PAST 8 TO 10 MONTHS: 5 MG 6 DAYS PER WEEK AND 7.5 MG ONE DAY PER WEEK
     Route: 048
  2. ATENOLOL [Concomitant]
  3. PEPCID [Concomitant]
  4. ZYRTEC [Concomitant]
  5. ENALAPRIL MALEATE [Concomitant]

REACTIONS (1)
  - INTERNATIONAL NORMALISED RATIO FLUCTUATION [None]
